FAERS Safety Report 7313217-3 (Version None)
Quarter: 2011Q1

REPORT INFORMATION
  Report Type: 
  Country: None (occurrence: None)
  Receive Date: 20110225
  Receipt Date: 20110215
  Transmission Date: 20110831
  Serious: Yes (Hospitalization, Other)
  Sender: FDA-Public Use
  Company Number: US-ELI_LILLY_AND_COMPANY-US201101002413

PATIENT
  Sex: Female
  Weight: 44.444 kg

DRUGS (3)
  1. FORTEO [Suspect]
     Indication: OSTEOPOROSIS
     Dosage: 20 UG, DAILY (1/D)
     Route: 058
     Dates: start: 20101214
  2. MULTI-VITAMIN [Concomitant]
     Dosage: UNK, DAILY (1/D)
  3. OSCAL [Concomitant]

REACTIONS (3)
  - HIP FRACTURE [None]
  - FALL [None]
  - FEMUR FRACTURE [None]
